FAERS Safety Report 9311010 (Version 2)
Quarter: 2013Q4

REPORT INFORMATION
  Report Type: Spontaneous
  Country: DK (occurrence: DK)
  Receive Date: 20130528
  Receipt Date: 20131215
  Transmission Date: 20140711
  Serious: Yes (Hospitalization)
  Sender: FDA-Public Use
  Company Number: DK-ROCHE-1227545

PATIENT
  Age: 68 Year
  Sex: Female

DRUGS (5)
  1. BONDRONAT [Suspect]
     Indication: METASTASES TO BONE
     Route: 048
     Dates: start: 20101216, end: 20120626
  2. DOLTARD (DENMARK) [Concomitant]
     Indication: PAIN
     Route: 065
     Dates: start: 2010
  3. MAGNESIA ^DAK^ [Concomitant]
     Indication: CONSTIPATION
     Route: 065
  4. LANSOPRAZOLE [Concomitant]
     Route: 065
  5. XELODA [Concomitant]
     Route: 065

REACTIONS (2)
  - Osteonecrosis of jaw [Recovered/Resolved]
  - Jaw lesion excision [Recovered/Resolved]
